FAERS Safety Report 25341309 (Version 1)
Quarter: 2025Q2

REPORT INFORMATION
  Report Type: Spontaneous
  Country: US (occurrence: None)
  Receive Date: 20250521
  Receipt Date: 20250521
  Transmission Date: 20250717
  Serious: Yes (Hospitalization)
  Sender: FDA-CTU
  Company Number: None

PATIENT
  Age: 70 Year
  Sex: Male
  Weight: 106.4 kg

DRUGS (2)
  1. ALIMTA [Suspect]
     Active Substance: PEMETREXED DISODIUM
  2. CARBOPLATIN [Suspect]
     Active Substance: CARBOPLATIN

REACTIONS (22)
  - Dysphagia [None]
  - Dysphagia [None]
  - Supraventricular extrasystoles [None]
  - Bundle branch block right [None]
  - Lung opacity [None]
  - Heart rate increased [None]
  - Platelet count decreased [None]
  - White blood cell count decreased [None]
  - Lethargy [None]
  - Disorientation [None]
  - Chest pain [None]
  - Dyspnoea [None]
  - Retching [None]
  - Body temperature increased [None]
  - Mental status changes [None]
  - Abdominal pain lower [None]
  - Staphylococcus test positive [None]
  - Blood lactic acid increased [None]
  - Blood sodium increased [None]
  - Blood glucose increased [None]
  - Escherichia infection [None]
  - Radiation oesophagitis [None]

NARRATIVE: CASE EVENT DATE: 20250219
